FAERS Safety Report 17429289 (Version 1)
Quarter: 2020Q1

REPORT INFORMATION
  Report Type: Spontaneous
  Country: US (occurrence: US)
  Receive Date: 20200201
  Receipt Date: 20200201
  Transmission Date: 20200409
  Serious: Yes (Death)
  Sender: FDA-Public Use
  Company Number: None

PATIENT
  Age: 72 Year
  Sex: Female
  Weight: 61.2 kg

DRUGS (3)
  1. GEMCITABINE HYDROCHLORIDE. [Suspect]
     Active Substance: GEMCITABINE HYDROCHLORIDE
     Dates: end: 20200116
  2. PACLITAXEL PROTEIN-BOUND PARTICLES (ALBUMINBOUND) [Suspect]
     Active Substance: PACLITAXEL
     Dates: end: 20200116
  3. CISPLATIN. [Suspect]
     Active Substance: CISPLATIN
     Dates: end: 20200116

REACTIONS (7)
  - Asthenia [None]
  - Fatigue [None]
  - Dyspnoea [None]
  - Cytopenia [None]
  - Cough [None]
  - Pyrexia [None]
  - Blood magnesium decreased [None]

NARRATIVE: CASE EVENT DATE: 20200128
